FAERS Safety Report 21479897 (Version 2)
Quarter: 2022Q4

REPORT INFORMATION
  Report Type: Report from Study
  Country: NL (occurrence: NL)
  Receive Date: 20221019
  Receipt Date: 20221021
  Transmission Date: 20230112
  Serious: Yes (Hospitalization, Other)
  Sender: FDA-Public Use
  Company Number: NL-BRISTOL-MYERS SQUIBB COMPANY-2022-123406

PATIENT
  Age: 74 Year
  Sex: Male
  Weight: 97.6 kg

DRUGS (10)
  1. NIVOLUMAB [Suspect]
     Active Substance: NIVOLUMAB
     Indication: Hormone-refractory prostate cancer
     Dosage: 279 UNITS NOT SPECIFIED END DATE WAS 10-AUG-2022
     Route: 042
     Dates: start: 20220422, end: 20220810
  2. IPILIMUMAB [Suspect]
     Active Substance: IPILIMUMAB
     Indication: Hormone-refractory prostate cancer
     Dosage: 93 UNIST NOT SPECOFIED
     Route: 042
     Dates: start: 20220422, end: 20220622
  3. FUROSEMIDE [Concomitant]
     Active Substance: FUROSEMIDE
     Indication: Cardiac failure
     Route: 042
     Dates: start: 20221014
  4. METOPROLOL TARTRATE [Concomitant]
     Active Substance: METOPROLOL TARTRATE
     Indication: Atrial flutter
     Route: 048
     Dates: start: 20220417
  5. METOPROLOL TARTRATE [Concomitant]
     Active Substance: METOPROLOL TARTRATE
     Indication: Cardiac failure
  6. METOPROLOL TARTRATE [Concomitant]
     Active Substance: METOPROLOL TARTRATE
     Indication: Atrial flutter
     Route: 048
     Dates: start: 20220417
  7. METOPROLOL TARTRATE [Concomitant]
     Active Substance: METOPROLOL TARTRATE
     Indication: Cardiac failure
  8. DIGOXIN [Concomitant]
     Active Substance: DIGOXIN
     Indication: Atrial flutter
     Route: 048
     Dates: start: 20221014, end: 20221014
  9. DIGOXIN [Concomitant]
     Active Substance: DIGOXIN
     Dosage: EACH 2 HOURS  INJECTIONS 0.5 TO 0.25 0.25 MG
     Route: 042
     Dates: start: 20221014, end: 20221014
  10. SPIRONOLACTONE [Concomitant]
     Active Substance: SPIRONOLACTONE
     Indication: Cardiac failure
     Route: 048
     Dates: start: 20221015

REACTIONS (2)
  - Cardiac failure [Unknown]
  - Atrial flutter [Unknown]

NARRATIVE: CASE EVENT DATE: 20221019
